FAERS Safety Report 6179006-0 (Version None)
Quarter: 2009Q2

REPORT INFORMATION
  Report Type: 
  Country: None (occurrence: None)
  Receive Date: 20090505
  Receipt Date: 20090424
  Transmission Date: 20091009
  Serious: Yes (Other)
  Sender: FDA-Public Use
  Company Number: US-JNJFOC-20080506086

PATIENT
  Sex: Male

DRUGS (6)
  1. DURAGESIC-100 [Suspect]
     Route: 062
  2. DURAGESIC-100 [Suspect]
     Route: 062
  3. DURAGESIC-100 [Suspect]
     Dosage: 1X 100 UG/HR PATCH PLUS 1X 50 UG/HR PATCH
     Route: 062
  4. DURAGESIC-100 [Suspect]
     Route: 062
  5. DURAGESIC-100 [Suspect]
     Route: 062
  6. DURAGESIC-100 [Suspect]
     Indication: PAIN
     Route: 062

REACTIONS (8)
  - CEREBROVASCULAR ACCIDENT [None]
  - CONVULSION [None]
  - ENAMEL ANOMALY [None]
  - FEELING ABNORMAL [None]
  - INAPPROPRIATE SCHEDULE OF DRUG ADMINISTRATION [None]
  - INCONTINENCE [None]
  - PAIN [None]
  - WITHDRAWAL SYNDROME [None]
